FAERS Safety Report 8250063-0 (Version None)
Quarter: 2012Q1

REPORT INFORMATION
  Report Type: 
  Country: None (occurrence: None)
  Receive Date: 20120328
  Receipt Date: 20120323
  Transmission Date: 20120608
  Serious: Yes (Life-Threatening, Hospitalization)
  Sender: FDA-Public Use
  Company Number: 2012SP015928

PATIENT
  Age: 47 Year
  Sex: Female

DRUGS (11)
  1. CIPROFLOXACIN HYDROCHLORIDE [Concomitant]
  2. BEVACIZUMAB (BEVACIZUMAB) [Suspect]
     Indication: GLIOBLASTOMA
     Dosage: Q3W, IV
     Route: 042
     Dates: start: 20101124, end: 20120206
  3. BEVACIZUMAB (BEVACIZUMAB) [Suspect]
  4. VALPROATE SODIUM [Concomitant]
  5. TEMOZOLOMIDE [Suspect]
     Indication: GLIOBLASTOMA
     Dosage: 190 MG, QM, PO
     Route: 048
     Dates: start: 20101124
  6. BEVACIZUMAB (BEVACIZUMAB) [Suspect]
  7. TRANXENE [Concomitant]
  8. IRBESARTAN [Concomitant]
  9. BEVACIZUMAB (BEVACIZUMAB) [Suspect]
  10. DEPAKENE [Concomitant]
  11. LEVONORGESTREL [Concomitant]

REACTIONS (3)
  - BRAIN ABSCESS [None]
  - MENINGITIS BACTERIAL [None]
  - CNS VENTRICULITIS [None]
